FAERS Safety Report 5806499-8 (Version None)
Quarter: 2008Q3

REPORT INFORMATION
  Report Type: 
  Country: None (occurrence: None)
  Receive Date: 20080710
  Receipt Date: 20080702
  Transmission Date: 20090109
  Serious: Yes (Death, Other)
  Sender: FDA-Public Use
  Company Number: GB-PFIZER INC-2008055639

PATIENT
  Age: 66 Year
  Sex: Male

DRUGS (5)
  1. SULFASALAZINE [Suspect]
     Route: 048
     Dates: start: 20031101, end: 20031231
  2. INDORAMIN [Suspect]
     Route: 048
     Dates: start: 20031101, end: 20031231
  3. BENDROFLUAZIDE [Concomitant]
  4. IRON SULFATETHIAMIN COMPOUND TAB [Concomitant]
  5. VERAPAMIL [Concomitant]

REACTIONS (2)
  - COMPLETED SUICIDE [None]
  - DEPRESSION [None]
